FAERS Safety Report 4648341-7 (Version None)
Quarter: 2005Q2

REPORT INFORMATION
  Report Type: 
  Country: None (occurrence: None)
  Receive Date: 20050426
  Receipt Date: 20050420
  Transmission Date: 20051028
  Serious: Yes (Hospitalization, Other)
  Sender: FDA-Public Use
  Company Number: HQWYE170120APR05

PATIENT
  Age: 40 Year
  Sex: Male

DRUGS (5)
  1. CORDARONE [Suspect]
     Dosage: 200 MG 1X PER 1 DAY, ORAL
     Route: 048
     Dates: start: 20020101, end: 20020601
  2. FELODIPINE [Concomitant]
  3. SIMVASTATIN [Concomitant]
  4. ROFECOXIB [Concomitant]
  5. OMEPRAZOLE [Concomitant]

REACTIONS (5)
  - ASTHENIA [None]
  - CHEST X-RAY ABNORMAL [None]
  - DYSPNOEA [None]
  - FALL [None]
  - TREMOR [None]
